FAERS Safety Report 7267859-4 (Version None)
Quarter: 2011Q1

REPORT INFORMATION
  Report Type: 
  Country: None (occurrence: None)
  Receive Date: 20110201
  Receipt Date: 20110127
  Transmission Date: 20110831
  Serious: Yes (Other)
  Sender: FDA-Public Use
  Company Number: D0070118A

PATIENT
  Sex: Female

DRUGS (1)
  1. REQUIP [Suspect]
     Route: 048
     Dates: start: 20080501

REACTIONS (4)
  - PARKINSONISM [None]
  - CONDITION AGGRAVATED [None]
  - MEDICATION RESIDUE [None]
  - PRODUCT QUALITY ISSUE [None]
